FAERS Safety Report 16419051 (Version 5)
Quarter: 2023Q1

REPORT INFORMATION
  Report Type: Spontaneous
  Country: US (occurrence: None)
  Receive Date: 20190612
  Receipt Date: 20230221
  Transmission Date: 20230418
  Serious: Yes (Other)
  Sender: FDA-Public Use
  Company Number: 2018SF33748

PATIENT
  Age: 11257 Day
  Sex: Female
  Weight: 108.9 kg

DRUGS (69)
  1. NEXIUM [Suspect]
     Active Substance: ESOMEPRAZOLE MAGNESIUM
     Indication: Gastrooesophageal reflux disease
     Route: 048
     Dates: start: 200801, end: 201603
  2. NEXIUM [Suspect]
     Active Substance: ESOMEPRAZOLE MAGNESIUM
     Indication: Gastrooesophageal reflux disease
     Route: 048
     Dates: start: 20121123, end: 20160317
  3. NEXIUM [Suspect]
     Active Substance: ESOMEPRAZOLE MAGNESIUM
     Indication: Gastrooesophageal reflux disease
     Route: 048
     Dates: start: 20160317
  4. PRILOSEC [Suspect]
     Active Substance: OMEPRAZOLE MAGNESIUM
     Indication: Gastrooesophageal reflux disease
     Route: 048
     Dates: start: 200801, end: 201603
  5. PRILOSEC [Suspect]
     Active Substance: OMEPRAZOLE MAGNESIUM
     Indication: Gastrooesophageal reflux disease
     Route: 048
     Dates: start: 2009, end: 2012
  6. PRILOSEC OTC [Suspect]
     Active Substance: OMEPRAZOLE MAGNESIUM
     Indication: Gastrooesophageal reflux disease
     Route: 048
     Dates: start: 200801, end: 201603
  7. PRILOSEC OTC [Suspect]
     Active Substance: OMEPRAZOLE MAGNESIUM
     Indication: Gastrooesophageal reflux disease
     Route: 048
     Dates: start: 2009, end: 2012
  8. PROTONIX [Suspect]
     Active Substance: PANTOPRAZOLE SODIUM
     Indication: Gastrooesophageal reflux disease
     Route: 065
     Dates: start: 200801, end: 201603
  9. PROTONIX [Suspect]
     Active Substance: PANTOPRAZOLE SODIUM
     Indication: Gastrooesophageal reflux disease
     Dosage: GENERIC
     Route: 065
     Dates: start: 20150217
  10. PROTONIX [Suspect]
     Active Substance: PANTOPRAZOLE SODIUM
     Indication: Gastrooesophageal reflux disease
     Route: 065
     Dates: start: 20121123, end: 20160317
  11. PROTONIX [Suspect]
     Active Substance: PANTOPRAZOLE SODIUM
     Indication: Gastrooesophageal reflux disease
     Dosage: GENERIC
     Route: 065
     Dates: start: 2013, end: 2015
  12. PROTONIX [Suspect]
     Active Substance: PANTOPRAZOLE SODIUM
     Indication: Gastrooesophageal reflux disease
     Route: 065
     Dates: start: 2012, end: 2014
  13. LANTUS [Concomitant]
     Active Substance: INSULIN GLARGINE
  14. GABAPENTIN [Concomitant]
     Active Substance: GABAPENTIN
  15. TRAMADOL [Concomitant]
     Active Substance: TRAMADOL
     Indication: Pain
     Dates: start: 20131012
  16. LISINOPRIL [Concomitant]
     Active Substance: LISINOPRIL
  17. METRONIDAZOLE [Concomitant]
     Active Substance: METRONIDAZOLE
  18. METOPROLOL [Concomitant]
     Active Substance: METOPROLOL
     Indication: Bipolar I disorder
     Dates: start: 20140325, end: 20160629
  19. AMOXICILLIN [Concomitant]
     Active Substance: AMOXICILLIN
     Indication: Bacterial infection
     Dates: start: 20060110, end: 20160525
  20. ATORVASTATIN [Concomitant]
     Active Substance: ATORVASTATIN
     Indication: Blood cholesterol increased
     Dates: start: 20130913, end: 20140919
  21. BENADRYL [Concomitant]
     Active Substance: DIPHENHYDRAMINE HYDROCHLORIDE
     Indication: Hypersensitivity
     Dates: start: 2019
  22. HYDROXYZINE [Concomitant]
     Active Substance: HYDROXYZINE HYDROCHLORIDE
     Indication: Hypersensitivity
  23. ASPIRIN [Concomitant]
     Active Substance: ASPIRIN
     Indication: Myocardial infarction
  24. FAMOTIDINE [Concomitant]
     Active Substance: FAMOTIDINE
  25. RANITIDINE [Concomitant]
     Active Substance: RANITIDINE
  26. TUMS [Concomitant]
     Active Substance: CALCIUM CARBONATE
     Dates: start: 2000, end: 2009
  27. ALKA-SETLZER [Concomitant]
     Dosage: 8 TABLETS DAILY
     Dates: start: 2000
  28. PEPTO-BISMOL [Concomitant]
     Active Substance: BISMUTH SUBSALICYLATE
     Dosage: 8 TABLETS A DAY
     Dates: start: 2000
  29. MILK OF MAGNESIA [Concomitant]
     Active Substance: MAGNESIUM HYDROXIDE
     Dosage: 4 TABLETS
     Dates: start: 2000, end: 2009
  30. ROLAIDS [Concomitant]
     Active Substance: CALCIUM CARBONATE\MAGNESIUM HYDROXIDE
     Dosage: 12 TAB;ETS DAY
     Dates: start: 2000, end: 2009
  31. MAALOX ANTACID [Concomitant]
     Active Substance: ALUMINUM HYDROXIDE\DIMETHICONE\MAGNESIUM HYDROXIDE
     Dosage: 16 TEASPOONS A DAY
     Dates: start: 2000, end: 2009
  32. MYLANTA [Concomitant]
     Active Substance: ALUMINUM HYDROXIDE\DIMETHICONE\MAGNESIUM HYDROXIDE
     Dosage: 10 ML 4 TABLETS A DAY
     Dates: start: 2000, end: 2009
  33. HUMALOG [Concomitant]
     Active Substance: INSULIN LISPRO
     Dosage: OTC
     Dates: start: 2018
  34. BYDUREON [Concomitant]
     Active Substance: EXENATIDE
     Dates: start: 20060415
  35. CALCIUM ACETATE [Concomitant]
     Active Substance: CALCIUM ACETATE
     Dates: start: 20060415
  36. METOPROLOL TARTRATE [Concomitant]
     Active Substance: METOPROLOL TARTRATE
     Dates: start: 20060415
  37. AMLODIPINE BESYLATE [Concomitant]
     Active Substance: AMLODIPINE BESYLATE
     Dates: start: 20060415
  38. FLUCONAZOLE [Concomitant]
     Active Substance: FLUCONAZOLE
     Dates: start: 20060415
  39. ACETAMINOPHEN\HYDROCODONE BITARTRATE [Concomitant]
     Active Substance: ACETAMINOPHEN\HYDROCODONE BITARTRATE
     Dates: start: 20060415
  40. NOVOLOG [Concomitant]
     Active Substance: INSULIN ASPART
     Dates: start: 20060415
  41. UREA [Concomitant]
     Active Substance: UREA
     Dates: start: 20060415
  42. HYDROCORTISONE [Concomitant]
     Active Substance: HYDROCORTISONE
     Dates: start: 20060415
  43. PATADAY [Concomitant]
     Active Substance: OLOPATADINE HYDROCHLORIDE
     Dates: start: 20060415
  44. LOVAZA [Concomitant]
     Active Substance: OMEGA-3-ACID ETHYL ESTERS
     Dates: start: 20060415
  45. SERTRALINE [Concomitant]
     Active Substance: SERTRALINE HYDROCHLORIDE
     Dates: start: 20060415
  46. VITAMIN D [Concomitant]
     Active Substance: VITAMIN D NOS
     Dates: start: 20060415
  47. FORSEMIDE [Concomitant]
     Dates: start: 20060415
  48. WARFARIN [Concomitant]
     Active Substance: WARFARIN
     Dates: start: 20060415
  49. POLYETHYLENE GLYCOL [Concomitant]
     Active Substance: POLYETHYLENE GLYCOL
     Dates: start: 20060415
  50. VICTOZA [Concomitant]
     Active Substance: LIRAGLUTIDE
     Dates: start: 20060415
  51. CALCITRIOL [Concomitant]
     Active Substance: CALCITRIOL
     Dates: start: 20060415
  52. REPAGLINIDE [Concomitant]
     Active Substance: REPAGLINIDE
     Dates: start: 20060415
  53. TINIDAZOLE [Concomitant]
     Active Substance: TINIDAZOLE
     Dates: start: 20060415
  54. TINDAMAX [Concomitant]
     Active Substance: TINIDAZOLE
     Dates: start: 20060415
  55. MAGNESIUM OXIDE [Concomitant]
     Active Substance: MAGNESIUM OXIDE
     Dates: start: 20060415
  56. GUAIATUSSIN [Concomitant]
     Dates: start: 20060415
  57. PREDNISONE [Concomitant]
     Active Substance: PREDNISONE
     Dates: start: 20060415
  58. CITALOPRAM [Concomitant]
     Active Substance: CITALOPRAM HYDROBROMIDE
     Dates: start: 20060415
  59. FERROUS SULFATE [Concomitant]
     Active Substance: FERROUS SULFATE
     Dates: start: 20060415
  60. CYCLOBENZAPRINE [Concomitant]
     Active Substance: CYCLOBENZAPRINE
     Dates: start: 20060415
  61. ACETAMINOPHEN [Concomitant]
     Active Substance: ACETAMINOPHEN
     Dates: start: 20060415
  62. DOCQLACE [Concomitant]
     Active Substance: DOCUSATE SODIUM
     Dates: start: 20060415
  63. CRESTOR [Concomitant]
     Active Substance: ROSUVASTATIN CALCIUM
     Dates: start: 20060415
  64. CHLORTHALIDONE [Concomitant]
     Active Substance: CHLORTHALIDONE
     Dates: start: 20060415
  65. ZETIA [Concomitant]
     Active Substance: EZETIMIBE
     Dates: start: 20060415
  66. CLINDESSE [Concomitant]
     Active Substance: CLINDAMYCIN PHOSPHATE
     Dates: start: 20060415
  67. NYSTATIN\TRIAMCINOLONE [Concomitant]
     Active Substance: NYSTATIN\TRIAMCINOLONE
     Dates: start: 20060415
  68. IBUPROFEN [Concomitant]
     Active Substance: IBUPROFEN
     Dates: start: 20060415
  69. DIPHENHYDRAMINE [Concomitant]
     Active Substance: DIPHENHYDRAMINE
     Dates: start: 20060415

REACTIONS (9)
  - Acute kidney injury [Not Recovered/Not Resolved]
  - Chronic kidney disease [Not Recovered/Not Resolved]
  - End stage renal disease [Unknown]
  - Renal failure [Unknown]
  - Nephrogenic anaemia [Unknown]
  - Renal injury [Unknown]
  - Tubulointerstitial nephritis [Unknown]
  - Dyspepsia [Unknown]
  - Gastrooesophageal reflux disease [Not Recovered/Not Resolved]

NARRATIVE: CASE EVENT DATE: 20130423
